FAERS Safety Report 8487404-5 (Version None)
Quarter: 2012Q2

REPORT INFORMATION
  Report Type: 
  Country: None (occurrence: None)
  Receive Date: 20120628
  Receipt Date: 20120628
  Transmission Date: 20120825
  Serious: Yes (Other)
  Sender: FDA-Public Use
  Company Number: None

PATIENT
  Age: 47 Year
  Sex: Female
  Weight: 47 kg

DRUGS (1)
  1. ZIPRASIDONE HCL [Suspect]
     Dosage: GENERIC SINCE MAR. 2012

REACTIONS (5)
  - NO THERAPEUTIC RESPONSE [None]
  - MOOD SWINGS [None]
  - PRODUCT SUBSTITUTION ISSUE [None]
  - SELF-INJURIOUS IDEATION [None]
  - PSYCHIATRIC DECOMPENSATION [None]
